FAERS Safety Report 7942194-7 (Version None)
Quarter: 2011Q4

REPORT INFORMATION
  Report Type: 
  Country: None (occurrence: None)
  Receive Date: 20111114
  Receipt Date: 20101215
  Transmission Date: 20120403
  Serious: Yes (Death)
  Sender: FDA-Public Use
  Company Number: 2010S1001785

PATIENT
  Age: 75 Year
  Sex: Male

DRUGS (3)
  1. RIFAMPIN [Suspect]
     Indication: BACTERAEMIA
     Dosage: 600 MG;;PO
     Route: 048
  2. CUBICIN [Suspect]
     Indication: BACTERAEMIA
     Dosage: 6 MG/KG;QD;IV
     Route: 042
  3. VANCOMYCIN [Concomitant]

REACTIONS (1)
  - GENERAL PHYSICAL HEALTH DETERIORATION [None]
